FAERS Safety Report 4425036-6 (Version None)
Quarter: 2004Q3

REPORT INFORMATION
  Report Type: 
  Country: None (occurrence: None)
  Receive Date: 20040813
  Receipt Date: 20040803
  Transmission Date: 20050211
  Serious: Yes (Hospitalization, Other)
  Sender: FDA-Public Use
  Company Number: 200417762GDDC

PATIENT
  Age: 46 Year
  Sex: Female

DRUGS (2)
  1. ARAVA [Suspect]
     Indication: RHEUMATOID ARTHRITIS
     Route: 048
     Dates: start: 20030722, end: 20040727
  2. MEDROL [Concomitant]
     Indication: RHEUMATOID ARTHRITIS
     Route: 048
     Dates: start: 19930723, end: 20040727

REACTIONS (7)
  - CONDITION AGGRAVATED [None]
  - DIARRHOEA [None]
  - GASTRIC ULCER [None]
  - GASTRODUODENITIS [None]
  - PANCREATITIS [None]
  - RHEUMATOID ARTHRITIS [None]
  - ULTRASOUND ABDOMEN ABNORMAL [None]
